FAERS Safety Report 7823257-3 (Version None)
Quarter: 2011Q4

REPORT INFORMATION
  Report Type: 
  Country: None (occurrence: None)
  Receive Date: 20111013
  Receipt Date: 20110927
  Transmission Date: 20120403
  Serious: Yes (Death, Hospitalization, Other)
  Sender: FDA-Public Use
  Company Number: 2011MA014509

PATIENT
  Age: 24 Year
  Sex: Male

DRUGS (1)
  1. FEVERALL [Suspect]
     Indication: OVERDOSE
     Dosage: 50 GM

REACTIONS (13)
  - HEPATIC STEATOSIS [None]
  - SEPTIC EMBOLUS [None]
  - GENERAL PHYSICAL HEALTH DETERIORATION [None]
  - CHOLESTASIS [None]
  - LIVER TRANSPLANT [None]
  - BRAIN DEATH [None]
  - ASPERGILLOSIS [None]
  - TRANSPLANT REJECTION [None]
  - MULTIPLE DRUG OVERDOSE [None]
  - NERVOUS SYSTEM DISORDER [None]
  - HEPATIC NECROSIS [None]
  - ACUTE HEPATIC FAILURE [None]
  - MULTI-ORGAN FAILURE [None]
